FAERS Safety Report 7909506-1 (Version None)
Quarter: 2011Q4

REPORT INFORMATION
  Report Type: 
  Country: None (occurrence: None)
  Receive Date: 20111111
  Receipt Date: 20111021
  Transmission Date: 20120403
  Serious: No
  Sender: FDA-Public Use
  Company Number: US-ROXANE LABORATORIES, INC.-2011-RO-01526RO

PATIENT
  Sex: Female

DRUGS (1)
  1. BUTORPHANOL TARATRATE [Suspect]

REACTIONS (3)
  - PRODUCT TASTE ABNORMAL [None]
  - PRODUCT MEASURED POTENCY ISSUE [None]
  - DRUG INEFFECTIVE [None]
